FAERS Safety Report 10889423 (Version 3)
Quarter: 2015Q4

REPORT INFORMATION
  Report Type: Report from Study
  Country: US (occurrence: US)
  Receive Date: 20150305
  Receipt Date: 20151120
  Transmission Date: 20160304
  Serious: Yes (Death, Hospitalization, Other)
  Sender: FDA-Public Use
  Company Number: GXBR2015US000858

PATIENT
  Age: 60 Year
  Sex: Male
  Weight: 62.41 kg

DRUGS (11)
  1. DRONABINOL. [Concomitant]
     Active Substance: DRONABINOL
     Indication: PRODUCT USED FOR UNKNOWN INDICATION
     Dosage: 2.5 MG, BID
     Route: 048
  2. PHENERGAN//PROMETHAZINE [Concomitant]
     Indication: PRODUCT USED FOR UNKNOWN INDICATION
     Dosage: 25 MG, Q 4 TO 6 H PRN
  3. ENOXAPARIN SODIUM. [Suspect]
     Active Substance: ENOXAPARIN SODIUM
     Dosage: 120 MG, QD
     Route: 058
  4. FILGRASTIM [Concomitant]
     Active Substance: FILGRASTIM
     Indication: PRODUCT USED FOR UNKNOWN INDICATION
     Dosage: 480 UG, QD FOR 3 DAYS
     Route: 058
  5. ZOFRAN [Concomitant]
     Active Substance: ONDANSETRON HYDROCHLORIDE
     Indication: PRODUCT USED FOR UNKNOWN INDICATION
     Dosage: 4 MG, Q4H PRN
     Route: 048
  6. ENOXAPARIN SODIUM. [Suspect]
     Active Substance: ENOXAPARIN SODIUM
     Indication: PULMONARY EMBOLISM
     Dosage: 100 MG, QD
     Route: 058
     Dates: start: 20141126
  7. ABRAXANE [Concomitant]
     Active Substance: PACLITAXEL
     Indication: NON-SMALL CELL LUNG CANCER STAGE IV
     Dosage: 465 MG (AT 260MG/M2) OVER 90 MINUTES
     Route: 042
     Dates: start: 20141205
  8. RADIATION [Concomitant]
     Active Substance: RADIATION THERAPY
     Indication: NON-SMALL CELL LUNG CANCER STAGE IV
     Dosage: UNK DF, UNK
     Route: 065
  9. FUROSEMIDE. [Concomitant]
     Active Substance: FUROSEMIDE
     Indication: PRODUCT USED FOR UNKNOWN INDICATION
     Dosage: 40 MG, QD
     Route: 048
  10. TARCEVA [Concomitant]
     Active Substance: ERLOTINIB HYDROCHLORIDE
     Indication: NON-SMALL CELL LUNG CANCER STAGE IV
     Dosage: 150 MG, QD
     Route: 048
     Dates: start: 20150115
  11. PROCHLORPERAZINE. [Concomitant]
     Active Substance: PROCHLORPERAZINE
     Indication: PRODUCT USED FOR UNKNOWN INDICATION
     Dosage: 10 MG, Q6H
     Route: 048

REACTIONS (17)
  - Pneumonia [Recovering/Resolving]
  - Hypoxia [Recovering/Resolving]
  - Mucosal inflammation [Recovering/Resolving]
  - Death [Fatal]
  - Asthenia [Recovering/Resolving]
  - Nausea [Recovering/Resolving]
  - Confusional state [Unknown]
  - Malignant neoplasm progression [Unknown]
  - Vomiting [Unknown]
  - Pain [Recovering/Resolving]
  - Memory impairment [Unknown]
  - Dehydration [Recovering/Resolving]
  - Tachycardia [Unknown]
  - Feeding disorder [Unknown]
  - Weight decreased [Recovering/Resolving]
  - Cough [Unknown]
  - Oropharyngeal pain [Unknown]

NARRATIVE: CASE EVENT DATE: 20141201
